FAERS Safety Report 7603564-X (Version None)
Quarter: 2011Q3

REPORT INFORMATION
  Report Type: 
  Country: None (occurrence: None)
  Receive Date: 20110712
  Receipt Date: 20110707
  Transmission Date: 20111222
  Serious: Yes (Hospitalization)
  Sender: FDA-Public Use
  Company Number: US-AMGEN-USASP2011031101

PATIENT
  Sex: Female

DRUGS (3)
  1. PREDNISONE [Concomitant]
     Dosage: UNK
  2. ENBREL [Suspect]
     Indication: PRODUCT USED FOR UNKNOWN INDICATION
     Dosage: 50 MG, QWK
     Dates: start: 20090914
  3. TREXALL [Concomitant]
     Dosage: UNK

REACTIONS (13)
  - HYPOAESTHESIA [None]
  - BLOOD COUNT ABNORMAL [None]
  - INJECTION SITE HAEMATOMA [None]
  - DRUG LEVEL DECREASED [None]
  - WEIGHT FLUCTUATION [None]
  - THROMBOSIS [None]
  - TREMOR [None]
  - LOSS OF CONSCIOUSNESS [None]
  - MUSCLE SPASMS [None]
  - HYPOTENSION [None]
  - CEREBRAL ARTERY EMBOLISM [None]
  - DIZZINESS [None]
  - CARDIAC DISORDER [None]
